FAERS Safety Report 23308138 (Version 1)
Quarter: 2023Q4

REPORT INFORMATION
  Report Type: Other
  Country: CN (occurrence: None)
  Receive Date: 20231218
  Receipt Date: 20231218
  Transmission Date: 20240110
  Serious: Yes (Other)
  Sender: FDA-Public Use
  Company Number: CN-ROCHE-3475362

PATIENT

DRUGS (2)
  1. BEVACIZUMAB [Suspect]
     Active Substance: BEVACIZUMAB
     Indication: Non-small cell lung cancer
     Route: 065
  2. CATEQUENTINIB [Suspect]
     Active Substance: CATEQUENTINIB
     Indication: Non-small cell lung cancer
     Route: 065

REACTIONS (19)
  - Asthenia [Unknown]
  - Diarrhoea [Unknown]
  - Hypertension [Unknown]
  - Nausea [Unknown]
  - Vomiting [Unknown]
  - Rash [Unknown]
  - Palmar-plantar erythrodysaesthesia syndrome [Unknown]
  - Alanine aminotransferase increased [Unknown]
  - Stomatitis [Unknown]
  - Decreased appetite [Unknown]
  - Abdominal pain [Unknown]
  - Dysphagia [Unknown]
  - Anaemia [Unknown]
  - Blood creatinine increased [Unknown]
  - Leukopenia [Unknown]
  - Thrombocytopenia [Unknown]
  - Proteinuria [Unknown]
  - Aspartate aminotransferase increased [Unknown]
  - Blood uric acid increased [Unknown]
